FAERS Safety Report 19570589 (Version 2)
Quarter: 2021Q3

REPORT INFORMATION
  Report Type: Report from Study
  Country: US (occurrence: US)
  Receive Date: 20210716
  Receipt Date: 20210924
  Transmission Date: 20211014
  Serious: Yes (Hospitalization)
  Sender: FDA-Public Use
  Company Number: US-JNJFOC-20210732595

PATIENT
  Age: 70 Year
  Sex: Female
  Weight: 90.9 kg

DRUGS (3)
  1. TADALAFIL. [Concomitant]
     Active Substance: TADALAFIL
  2. SELEXIPAG [Suspect]
     Active Substance: SELEXIPAG
     Indication: PULMONARY ARTERIAL HYPERTENSION
     Route: 048
  3. AMBRISENTAN [Concomitant]
     Active Substance: AMBRISENTAN

REACTIONS (2)
  - Fluid retention [Unknown]
  - Pulmonary arterial hypertension [Unknown]

NARRATIVE: CASE EVENT DATE: 20210628
